FAERS Safety Report 19399105 (Version 1)
Quarter: 2021Q2

REPORT INFORMATION
  Report Type: Spontaneous
  Country: CN (occurrence: CN)
  Receive Date: 20210610
  Receipt Date: 20210610
  Transmission Date: 20210717
  Serious: Yes (Other)
  Sender: FDA-Public Use
  Company Number: CN-GLAXOSMITHKLINE-CN2021APC121673

PATIENT
  Age: 14 Year
  Sex: Female
  Weight: 42 kg

DRUGS (1)
  1. BELIMUMAB [Suspect]
     Active Substance: BELIMUMAB
     Indication: INFLAMMATION
     Dosage: 440 MG, QD
     Route: 042
     Dates: start: 20210223, end: 20210223

REACTIONS (11)
  - Skin disorder [Recovering/Resolving]
  - Mouth ulceration [Recovering/Resolving]
  - Lip swelling [Recovering/Resolving]
  - Flushing [Recovering/Resolving]
  - Tenderness [Recovering/Resolving]
  - Conjunctival hyperaemia [Recovering/Resolving]
  - Rash [Recovering/Resolving]
  - Lip erythema [Recovering/Resolving]
  - Lip blister [Recovering/Resolving]
  - Blister [Recovering/Resolving]
  - Chapped lips [Recovering/Resolving]

NARRATIVE: CASE EVENT DATE: 20210224
